FAERS Safety Report 14237293 (Version 1)
Quarter: 2017Q4

REPORT INFORMATION
  Report Type: Spontaneous
  Country: AU (occurrence: AU)
  Receive Date: 20171129
  Receipt Date: 20171129
  Transmission Date: 20180321
  Serious: Yes (Other)
  Sender: FDA-Public Use
  Company Number: PHHY2017AU174077

PATIENT
  Sex: Female

DRUGS (1)
  1. GILENYA [Suspect]
     Active Substance: FINGOLIMOD HYDROCHLORIDE
     Indication: RELAPSING-REMITTING MULTIPLE SCLEROSIS
     Dosage: 0.5 MG, QD
     Route: 065
     Dates: start: 20131218

REACTIONS (12)
  - Rosacea [Unknown]
  - Micturition urgency [Unknown]
  - Papule [Unknown]
  - Immunosuppression [Unknown]
  - Muscle spasticity [Unknown]
  - Burning sensation [Unknown]
  - Rash pustular [Unknown]
  - Cerebrovascular disorder [Unknown]
  - Ataxia [Unknown]
  - Erythema [Unknown]
  - Fatigue [Unknown]
  - Demodicidosis [Unknown]
